FAERS Safety Report 10538555 (Version 2)
Quarter: 2014Q4

REPORT INFORMATION
  Report Type: Spontaneous
  Country: US (occurrence: US)
  Receive Date: 20141023
  Receipt Date: 20141023
  Transmission Date: 20150529
  Serious: Yes (Hospitalization, Other)
  Sender: FDA-Public Use
  Company Number: US-GLAXOSMITHKLINE-A0873059A

PATIENT
  Age: 64 Year
  Sex: Male

DRUGS (2)
  1. AVANDIA [Suspect]
     Active Substance: ROSIGLITAZONE MALEATE
     Indication: DIABETES MELLITUS
     Dosage: 4 MG, QD
     Route: 048
     Dates: start: 200605, end: 200608
  2. AVANDARYL [Suspect]
     Active Substance: GLIMEPIRIDE\ROSIGLITAZONE MALEATE
     Indication: DIABETES MELLITUS
     Dosage: UNK, QD
     Route: 048
     Dates: start: 200701, end: 200705

REACTIONS (9)
  - Ischaemic stroke [Unknown]
  - Cerebrovascular accident [Unknown]
  - Speech disorder [Unknown]
  - Amnesia [Unknown]
  - Transient ischaemic attack [Not Recovered/Not Resolved]
  - Hemiparesis [Unknown]
  - Hemiplegia [Unknown]
  - Cerebral artery occlusion [Unknown]
  - Cerebral infarction [Unknown]

NARRATIVE: CASE EVENT DATE: 200705
